FAERS Safety Report 16638549 (Version 1)
Quarter: 2019Q3

REPORT INFORMATION
  Report Type: Report from Study
  Country: ZA (occurrence: ZA)
  Receive Date: 20190726
  Receipt Date: 20190726
  Transmission Date: 20191004
  Serious: Yes (Death, Other)
  Sender: FDA-Public Use
  Company Number: ZA-ASTRAZENECA-2019SF05947

PATIENT
  Sex: Male

DRUGS (7)
  1. CILIFT [Concomitant]
     Active Substance: CITALOPRAM HYDROBROMIDE
  2. GLUCOPHAGE XR [Concomitant]
     Active Substance: METFORMIN HYDROCHLORIDE
  3. MYLAN FUROSEMIDE [Concomitant]
     Active Substance: FUROSEMIDE
  4. CARDURA XL [Concomitant]
     Active Substance: DOXAZOSIN MESYLATE
  5. TRUSTAN [Suspect]
     Active Substance: ESOMEPRAZOLE
     Indication: ULCER
     Dosage: 40.0MG UNKNOWN
     Route: 048
  6. CLOPIDOGREL [Concomitant]
     Active Substance: CLOPIDOGREL BISULFATE
  7. CARLOC [Concomitant]
     Active Substance: CARVEDILOL

REACTIONS (2)
  - Death [Fatal]
  - Cardiac disorder [Unknown]
